FAERS Safety Report 9971015 (Version 1)
Quarter: 2014Q1

REPORT INFORMATION
  Report Type: Spontaneous
  Country: US (occurrence: None)
  Receive Date: 20140305
  Receipt Date: 20140305
  Transmission Date: 20141002
  Serious: Yes (Other)
  Sender: FDA-Public Use
  Company Number: None

PATIENT
  Age: 31 Year
  Sex: Female

DRUGS (1)
  1. MINASTRIN 24 FE [Suspect]
     Dosage: 1 PILL ONCE DAILY
     Dates: start: 20140302, end: 20140302

REACTIONS (2)
  - Migraine [None]
  - Astigmatism [None]
